FAERS Safety Report 7094303-2 (Version None)
Quarter: 2010Q4

REPORT INFORMATION
  Report Type: 
  Country: None (occurrence: None)
  Receive Date: 20101110
  Receipt Date: 20101029
  Transmission Date: 20110411
  Serious: Yes (Hospitalization)
  Sender: FDA-Public Use
  Company Number: US-ELI_LILLY_AND_COMPANY-US201011000186

PATIENT
  Sex: Female

DRUGS (9)
  1. FORTEO [Suspect]
     Dosage: 20 UG, DAILY (1/D)
  2. PREDNISONE [Concomitant]
  3. DILTIAZEM [Concomitant]
  4. LEVOTHYROXINE [Concomitant]
  5. OMEPRAZOLE [Concomitant]
  6. DETROL LA [Concomitant]
  7. TRIAMTERENE [Concomitant]
  8. SPIRIVA [Concomitant]
  9. ALBUTEROL [Concomitant]

REACTIONS (3)
  - ASTHENIA [None]
  - CHRONIC OBSTRUCTIVE PULMONARY DISEASE [None]
  - DYSPNOEA [None]
